FAERS Safety Report 13774695 (Version 1)
Quarter: 2017Q3

REPORT INFORMATION
  Report Type: Spontaneous
  Country: US (occurrence: US)
  Receive Date: 20170720
  Receipt Date: 20170720
  Transmission Date: 20171127
  Serious: No
  Sender: FDA-Public Use
  Company Number: None

PATIENT
  Age: 65 Year
  Sex: Male

DRUGS (1)
  1. CAPECITABINE 500MG ACCORD [Suspect]
     Active Substance: CAPECITABINE
     Indication: RECTAL CANCER
     Dosage: FREQUENCY - BID M-F DURING RADIOTION WITH 150MG
     Route: 048
     Dates: start: 20170617

REACTIONS (2)
  - Chest discomfort [None]
  - Orthostatic hypotension [None]

NARRATIVE: CASE EVENT DATE: 20170714
